FAERS Safety Report 4645900-2 (Version None)
Quarter: 2005Q2

REPORT INFORMATION
  Report Type: 
  Country: None (occurrence: None)
  Receive Date: 20050427
  Receipt Date: 20050415
  Transmission Date: 20051028
  Serious: Yes (Hospitalization)
  Sender: FDA-Public Use
  Company Number: FR-BRISTOL-MYERS SQUIBB COMPANY-12941977

PATIENT
  Age: 61 Year
  Sex: Male

DRUGS (8)
  1. ENDOXAN [Suspect]
     Route: 042
     Dates: start: 20041123, end: 20041203
  2. DOXORUBICIN [Suspect]
     Route: 042
     Dates: start: 20041123, end: 20041203
  3. ARACYTINE [Suspect]
     Route: 042
     Dates: start: 20041123, end: 20041203
  4. ETOPOSIDE [Suspect]
     Route: 042
     Dates: start: 20041123, end: 20041203
  5. PYOSTACINE [Suspect]
     Indication: SKIN INFECTION
     Route: 048
     Dates: start: 20041123
  6. ALLOPURINOL [Suspect]
     Indication: TUMOUR LYSIS SYNDROME
     Route: 048
     Dates: start: 20041119
  7. COZAAR [Concomitant]
  8. HYZAAR [Concomitant]

REACTIONS (3)
  - CARDIAC FAILURE [None]
  - DERMATITIS EXFOLIATIVE [None]
  - FEBRILE BONE MARROW APLASIA [None]
